FAERS Safety Report 6346042-0 (Version None)
Quarter: 2009Q3

REPORT INFORMATION
  Report Type: 
  Country: None (occurrence: None)
  Receive Date: 20090821
  Receipt Date: 20090608
  Transmission Date: 20100115
  Serious: No
  Sender: FDA-Public Use
  Company Number: 8047961

PATIENT
  Age: 23 Year
  Sex: Female

DRUGS (3)
  1. CIMZIA [Suspect]
     Indication: CROHN'S DISEASE
     Dosage: 400 MG SC
     Route: 058
  2. PENTASA [Concomitant]
  3. MULTI-VITAMINS [Concomitant]

REACTIONS (1)
  - INJECTION SITE PAIN [None]
